FAERS Safety Report 8594051-3 (Version None)
Quarter: 2012Q3

REPORT INFORMATION
  Report Type: 
  Country: None (occurrence: None)
  Receive Date: 20120814
  Receipt Date: 20120808
  Transmission Date: 20120928
  Serious: Yes (Other)
  Sender: FDA-Public Use
  Company Number: PHHY2012AR069539

PATIENT
  Sex: Female

DRUGS (3)
  1. DIOVAN [Suspect]
     Indication: HYPERTENSION
     Dosage: UNK UKN, UNK
  2. LOSARTAN POTASSIUM [Suspect]
     Dosage: UNK UKN, UNK
  3. DIOVAN [Suspect]
     Dosage: 160 MG (2 TABLETS DAILY)

REACTIONS (1)
  - THROMBOSIS [None]
